FAERS Safety Report 7563675-4 (Version None)
Quarter: 2011Q2

REPORT INFORMATION
  Report Type: 
  Country: None (occurrence: None)
  Receive Date: 20110621
  Receipt Date: 20110621
  Transmission Date: 20111010
  Serious: No
  Sender: FDA-Public Use
  Company Number: None

PATIENT
  Age: 36 Year
  Sex: Female
  Weight: 80.7403 kg

DRUGS (1)
  1. AMITIZA [Suspect]
     Indication: IRRITABLE BOWEL SYNDROME
     Dosage: TWICE DAILY WITH FOOD
     Dates: start: 20110616, end: 20110618

REACTIONS (7)
  - DIZZINESS [None]
  - CHEST DISCOMFORT [None]
  - INSOMNIA [None]
  - ECONOMIC PROBLEM [None]
  - DRY MOUTH [None]
  - PARAESTHESIA [None]
  - FEELING DRUNK [None]
